FAERS Safety Report 7280030-5 (Version None)
Quarter: 2011Q1

REPORT INFORMATION
  Report Type: 
  Country: None (occurrence: None)
  Receive Date: 20110203
  Receipt Date: 20110203
  Transmission Date: 20110831
  Serious: Yes (Other)
  Sender: FDA-Public Use
  Company Number: None

PATIENT
  Age: 35 Year
  Sex: Female
  Weight: 76.6579 kg

DRUGS (5)
  1. GEODON [Concomitant]
  2. DEXTROMETHORPHAN ROBITUSSIN DM [Suspect]
     Indication: COUGH
     Dosage: 1 TO 1 TSPNS ONCE PO
     Route: 048
     Dates: start: 20090101, end: 20090101
  3. DEXTROMETHORPHAN ROBITUSSIN DM [Suspect]
     Indication: BRONCHITIS
     Dosage: 1 TO 1 TSPNS ONCE PO
     Route: 048
     Dates: start: 20090101, end: 20090101
  4. DEXTROMETHORPHAN ROBITUSSIN DM [Suspect]
     Indication: PNEUMONIA
     Dosage: 1 TO 1 TSPNS ONCE PO
     Route: 048
     Dates: start: 20090101, end: 20090101
  5. OXCARBAZEPINE [Concomitant]

REACTIONS (2)
  - PSYCHIATRIC SYMPTOM [None]
  - FEELING ABNORMAL [None]
